FAERS Safety Report 5199619-2 (Version None)
Quarter: 2007Q1

REPORT INFORMATION
  Report Type: 
  Country: None (occurrence: None)
  Receive Date: 20070102
  Receipt Date: 20070102
  Transmission Date: 20070707
  Serious: Yes (Death)
  Sender: FDA-Public Use
  Company Number: None

PATIENT
  Age: 56 Year
  Sex: Male
  Weight: 86.1834 kg

DRUGS (1)
  1. GADOLINIUM VARIES [Suspect]

REACTIONS (2)
  - CONFUSIONAL STATE [None]
  - NEPHROGENIC FIBROSING DERMOPATHY [None]
